FAERS Safety Report 20170866 (Version 1)
Quarter: 2021Q4

REPORT INFORMATION
  Report Type: Spontaneous
  Country: US (occurrence: None)
  Receive Date: 20211210
  Receipt Date: 20211210
  Transmission Date: 20220304
  Serious: Yes (Death)
  Sender: FDA-Public Use
  Company Number: None

PATIENT
  Age: 74 Year
  Sex: Female

DRUGS (11)
  1. GAMUNEX-C [Suspect]
     Active Substance: HUMAN IMMUNOGLOBULIN G
     Indication: Factor VIII deficiency
     Dosage: OTHER STRENGTH : 20/200 GM/ML;?OTHER QUANTITY : 20/200 GM/ML;?OTHER FREQUENCY : DAILY 2 DAYS EVERY;
     Route: 042
     Dates: start: 20190820, end: 20211208
  2. ASPIRIN [Concomitant]
     Active Substance: ASPIRIN
  3. CLONIDINE [Concomitant]
     Active Substance: CLONIDINE
  4. COREG [Concomitant]
     Active Substance: CARVEDILOL
  5. EPINEPHRINE [Concomitant]
     Active Substance: EPINEPHRINE
  6. FISH OIL [Concomitant]
     Active Substance: FISH OIL
  7. HEPARIN LOCK FLUSH [Concomitant]
     Active Substance: HEPARIN SODIUM
  8. LOSARTAN POTASSIUM [Concomitant]
     Active Substance: LOSARTAN POTASSIUM
  9. MONOJECT PREFILL ADVANCED [Concomitant]
  10. SODIUM CHLORIDE [Suspect]
     Active Substance: SODIUM CHLORIDE
  11. WELCHOL PAK [Concomitant]

REACTIONS (1)
  - Death [None]

NARRATIVE: CASE EVENT DATE: 20211208
